FAERS Safety Report 23320315 (Version 1)
Quarter: 2023Q4

REPORT INFORMATION
  Report Type: Spontaneous
  Country: US (occurrence: None)
  Receive Date: 20231219
  Receipt Date: 20231219
  Transmission Date: 20240110
  Serious: Yes (Hospitalization)
  Sender: FDA-Public Use
  Company Number: None

PATIENT
  Sex: Male

DRUGS (25)
  1. NUCALA [Suspect]
     Active Substance: MEPOLIZUMAB
     Indication: Asthma
     Route: 058
     Dates: start: 20210407
  2. ALBUTEROL AER HFA [Concomitant]
  3. ALBUTEROL NEB 0.083% [Concomitant]
  4. BENZONATATE CAP 100MG [Concomitant]
  5. BENZONATATE CAP 200MG [Concomitant]
  6. CHLORHEX GLU SOL 0.12% [Concomitant]
  7. DIAZEPAM TAB 5MG [Concomitant]
  8. DOXEPIN HCL CAP 100MG [Concomitant]
  9. DOXEPIN HCL CAP 25MG [Concomitant]
  10. DOXEPIN HCL CAP 50MG [Concomitant]
  11. ESZOPICLONE TAB 3MG [Concomitant]
  12. FINASTERIDE TAB 5MG [Concomitant]
  13. FLUTICASONE [Concomitant]
     Active Substance: FLUTICASONE
  14. LINZESS CAP 72MCG [Concomitant]
  15. METHYLPRED TAB 4MG [Concomitant]
  16. METOCLOPRAM TAB 10MG [Concomitant]
  17. MIRTAZAPINE TAB 7.5MG [Concomitant]
  18. OMEPRAZOLE CAP 40MG [Concomitant]
  19. PREDNISONE TAB 20MG [Concomitant]
  20. SUCRALFATE TAB 1GM [Concomitant]
  21. TAMSULOSIN CAP 0.4MG [Concomitant]
  22. TRELEGY AER ELLIPTA [Concomitant]
  23. TRETINOIN CRE 0.1% [Concomitant]
  24. TRIAMCINOLON AER 55MCG/AC [Concomitant]
  25. TRIAMCINOLON CRE 0.1% [Concomitant]

REACTIONS (1)
  - Impaired quality of life [None]
